FAERS Safety Report 8185615-X (Version None)
Quarter: 2012Q1

REPORT INFORMATION
  Report Type: 
  Country: None (occurrence: None)
  Receive Date: 20120305
  Receipt Date: 20120301
  Transmission Date: 20120608
  Serious: Yes (Other)
  Sender: FDA-Public Use
  Company Number: US-PFIZER INC-2012035440

PATIENT

DRUGS (2)
  1. DILANTIN-125 [Suspect]
     Dosage: UNK
  2. NEURONTIN [Suspect]
     Dosage: UNK

REACTIONS (3)
  - CONVULSION [None]
  - TREMOR [None]
  - HYPERHIDROSIS [None]
